FAERS Safety Report 6371993-0 (Version None)
Quarter: 2009Q3

REPORT INFORMATION
  Report Type: 
  Country: None (occurrence: None)
  Receive Date: 20090917
  Receipt Date: 20090904
  Transmission Date: 20100115
  Serious: Yes (Disabling)
  Sender: FDA-Public Use
  Company Number: ADR17792009

PATIENT
  Age: 49 Year
  Sex: Female

DRUGS (2)
  1. CITALOPRAM HYDROBROMIDE [Suspect]
     Indication: DEPRESSION
     Dosage: 10 MG, ORAL USE
     Route: 048
     Dates: start: 20070115, end: 20070129
  2. PREMIQUE [Concomitant]

REACTIONS (1)
  - RETINAL VEIN THROMBOSIS [None]
